FAERS Safety Report 24540091 (Version 1)
Quarter: 2024Q4

REPORT INFORMATION
  Report Type: Spontaneous
  Country: US (occurrence: None)
  Receive Date: 20241023
  Receipt Date: 20241023
  Transmission Date: 20250114
  Serious: Yes (Hospitalization)
  Sender: Public
  Company Number: None

PATIENT
  Sex: Female

DRUGS (1)
  1. NIVESTYM [Suspect]
     Active Substance: FILGRASTIM-AAFI
     Indication: Neutropenia
     Dosage: OTHER STRENGTH : 300/0.5 UG;?OTHER FREQUENCY : MONDAY AND TUESDAY;?
     Route: 058
     Dates: start: 202210

REACTIONS (4)
  - Pyrexia [None]
  - White blood cell count increased [None]
  - Aphonia [None]
  - Dysphonia [None]
